FAERS Safety Report 8156917-8 (Version None)
Quarter: 2012Q1

REPORT INFORMATION
  Report Type: 
  Country: None (occurrence: None)
  Receive Date: 20120222
  Receipt Date: 20120216
  Transmission Date: 20120608
  Serious: Yes (Hospitalization)
  Sender: FDA-Public Use
  Company Number: US-BRISTOL-MYERS SQUIBB COMPANY-15478001

PATIENT
  Age: 65 Year
  Sex: Male

DRUGS (8)
  1. ACETYLSALICYLIC ACID SRT [Concomitant]
     Route: 048
  2. LIPITOR [Concomitant]
     Dosage: TABLET
     Route: 048
  3. ASPIRIN [Concomitant]
     Route: 048
  4. YERVOY [Suspect]
     Indication: MALIGNANT MELANOMA
     Dosage: TAKEN OFF THE STUDY THERAPY ON 05-APR-2011
     Route: 042
     Dates: start: 20101124, end: 20110405
  5. BACTRIM DS [Concomitant]
     Dosage: 1 DF= 1 TAB
     Route: 048
  6. OMEPRAZOLE [Concomitant]
     Dosage: TABLET
     Route: 048
  7. PREDNISONE [Concomitant]
  8. ATIVAN [Concomitant]
     Indication: CLAUSTROPHOBIA
     Dosage: 1 DF= 1 MG TAB,TAKE 1 TAB 30 MINS BEFORE MRI SCAN,#6 TABS.
     Route: 048

REACTIONS (2)
  - COLITIS MICROSCOPIC [None]
  - PYREXIA [None]
